FAERS Safety Report 19930884 (Version 2)
Quarter: 2021Q4

REPORT INFORMATION
  Report Type: Report from Study
  Country: IL (occurrence: IL)
  Receive Date: 20211007
  Receipt Date: 20211027
  Transmission Date: 20220304
  Serious: Yes (Hospitalization)
  Sender: FDA-Public Use
  Company Number: NVSC2021IL226835

PATIENT
  Age: 73 Year
  Sex: Male

DRUGS (2)
  1. TAFINLAR [Suspect]
     Active Substance: DABRAFENIB MESYLATE
     Indication: Malignant melanoma
     Dosage: 150 MG, BID
     Route: 048
     Dates: start: 20210829, end: 20210906
  2. MEKINIST [Suspect]
     Active Substance: TRAMETINIB DIMETHYL SULFOXIDE
     Indication: Malignant melanoma
     Dosage: 2 MG, QD
     Route: 048
     Dates: start: 20210829, end: 20210906

REACTIONS (5)
  - Pyrexia [Recovered/Resolved]
  - Chills [Recovered/Resolved]
  - Blood pressure decreased [Unknown]
  - Haemoglobin decreased [Recovering/Resolving]
  - Fluid retention [Not Recovered/Not Resolved]

NARRATIVE: CASE EVENT DATE: 20210905
